FAERS Safety Report 9656803 (Version 1)
Quarter: 2013Q4

REPORT INFORMATION
  Report Type: Spontaneous
  Country: US (occurrence: None)
  Receive Date: 20131029
  Receipt Date: 20131029
  Transmission Date: 20140711
  Serious: No
  Sender: FDA-Public Use
  Company Number: None

PATIENT
  Age: 47 Year
  Sex: Female

DRUGS (1)
  1. TECFIDERA, 240 MG, BIOGEN IDEC [Suspect]
     Route: 048
     Dates: start: 20130906, end: 20131023

REACTIONS (4)
  - Diarrhoea [None]
  - Flushing [None]
  - Fatigue [None]
  - Depression [None]
